FAERS Safety Report 9548063 (Version 2)
Quarter: 2013Q3

REPORT INFORMATION
  Report Type: Spontaneous
  Country: US (occurrence: US)
  Receive Date: 20130924
  Receipt Date: 20130924
  Transmission Date: 20140515
  Serious: No
  Sender: FDA-Public Use
  Company Number: US-PURDUE-USA-2010-0050524

PATIENT
  Sex: Male

DRUGS (1)
  1. MORPHINE SULFATE EXTENDED-RELEASE TABLETS (WATSON 74-862) [Suspect]
     Indication: PAIN
     Dosage: 120 MG, DAILY

REACTIONS (4)
  - Pain [Unknown]
  - Inadequate analgesia [Unknown]
  - Product quality issue [Unknown]
  - Drug ineffective [Unknown]
